FAERS Safety Report 10071393 (Version 1)
Quarter: 2014Q2

REPORT INFORMATION
  Report Type: Spontaneous
  Country: US (occurrence: US)
  Receive Date: 20140410
  Receipt Date: 20140410
  Transmission Date: 20141212
  Serious: No
  Sender: FDA-Public Use
  Company Number: US-B.I. PHARMACEUTICALS,INC./RIDGEFIELD-2014-BI-14488PF

PATIENT
  Sex: Female

DRUGS (17)
  1. SPIRIVA [Suspect]
     Indication: PRODUCT USED FOR UNKNOWN INDICATION
     Route: 065
  2. XEPENEX HFA INHALER [Concomitant]
     Route: 065
  3. ATELVIA [Concomitant]
     Route: 065
  4. CALCIUM [Concomitant]
     Route: 065
  5. LONOPIN [Concomitant]
     Route: 065
  6. ENBREL [Concomitant]
     Route: 065
  7. FUROSEMIDE [Concomitant]
     Route: 065
  8. METHOTREXATE [Concomitant]
     Route: 065
  9. NEURONTIN [Concomitant]
     Route: 065
  10. PROZAC [Concomitant]
     Route: 065
  11. OMEPRAZOLE [Concomitant]
     Route: 065
  12. LETAIRIS [Concomitant]
     Route: 065
  13. REVATIO [Concomitant]
     Route: 065
  14. VENTAVIS [Concomitant]
     Route: 065
  15. ALDACTONE [Concomitant]
     Route: 065
  16. CAUMADINE [Concomitant]
     Route: 065
  17. FORTEO [Concomitant]
     Route: 065

REACTIONS (1)
  - Drug hypersensitivity [Unknown]
